FAERS Safety Report 13342159 (Version 1)
Quarter: 2017Q1

REPORT INFORMATION
  Report Type: Spontaneous
  Country: US (occurrence: US)
  Receive Date: 20170316
  Receipt Date: 20170316
  Transmission Date: 20170428
  Serious: Yes (Life-Threatening, Hospitalization, Disabling)
  Sender: FDA-Public Use
  Company Number: None

PATIENT
  Age: 60 Year
  Sex: Female
  Weight: 59.02 kg

DRUGS (11)
  1. VERAPAMIL HCL SR 360MG PO CAP [Suspect]
     Active Substance: VERAPAMIL HYDROCHLORIDE
     Indication: CARDIOMEGALY
     Route: 048
  2. VITAMIN C [Concomitant]
     Active Substance: ASCORBIC ACID
  3. PROBIOTIC [Concomitant]
     Active Substance: PROBIOTICS NOS
  4. ZANTAC [Concomitant]
     Active Substance: RANITIDINE HYDROCHLORIDE
  5. VITAMIN D [Concomitant]
     Active Substance: CHOLECALCIFEROL
  6. INDIGO MARIJUANA [Concomitant]
  7. IMMUNE HEALTH (BLACKCURRENT + MOLLBERRY) [Concomitant]
  8. PROAIR HFA [Concomitant]
     Active Substance: ALBUTEROL SULFATE
  9. VERAPAMIL HCL SR 360MG PO CAP [Suspect]
     Active Substance: VERAPAMIL HYDROCHLORIDE
     Indication: HYPERTROPHIC CARDIOMYOPATHY
     Route: 048
  10. C B D OIL [Concomitant]
  11. MALIC ACID [Concomitant]
     Active Substance: MALIC ACID

REACTIONS (4)
  - Gastric haemorrhage [None]
  - Malaise [None]
  - Muscle spasms [None]
  - Asthenia [None]

NARRATIVE: CASE EVENT DATE: 20120707
